FAERS Safety Report 24080771 (Version 1)
Quarter: 2024Q3

REPORT INFORMATION
  Report Type: Spontaneous
  Country: FR (occurrence: None)
  Receive Date: 20240711
  Receipt Date: 20240711
  Transmission Date: 20241017
  Serious: Yes (Other)
  Sender: ASTRAZENECA
  Company Number: 2024A158440

PATIENT
  Sex: Male
  Weight: 65 kg

DRUGS (1)
  1. DURVALUMAB [Suspect]
     Active Substance: DURVALUMAB
     Indication: Non-small cell lung cancer
     Dosage: 10 MG/KG Q2W
     Route: 042
     Dates: start: 20190418, end: 20200323

REACTIONS (3)
  - Toxicity to various agents [Not Recovered/Not Resolved]
  - Oesophagitis [Unknown]
  - Rash [Unknown]
